FAERS Safety Report 11595866 (Version 2)
Quarter: 2016Q1

REPORT INFORMATION
  Report Type: Spontaneous
  Country: JP (occurrence: JP)
  Receive Date: 20151006
  Receipt Date: 20160106
  Transmission Date: 20160525
  Serious: Yes (Hospitalization, Other)
  Sender: FDA-Public Use
  Company Number: JP-MYLANLABS-2015M1031406

PATIENT

DRUGS (3)
  1. FONDAPARINUX [Suspect]
     Active Substance: FONDAPARINUX
     Indication: THROMBOSIS PROPHYLAXIS
     Dosage: 1.5 MG, QD
     Route: 058
     Dates: start: 20150720, end: 20150727
  2. COLCHICINE. [Concomitant]
     Active Substance: COLCHICINE
     Indication: GOUT
     Dosage: 3 MG, QD
     Route: 065
     Dates: start: 20150721, end: 20150727
  3. LANSOPRAZOLE. [Concomitant]
     Active Substance: LANSOPRAZOLE
     Indication: STRESS ULCER
     Dosage: 15 MG, QD
     Route: 065
     Dates: start: 20150723, end: 20150804

REACTIONS (8)
  - Abdominal discomfort [Unknown]
  - Vomiting [Recovering/Resolving]
  - Dysphonia [Recovered/Resolved]
  - Abdominal pain [Recovered/Resolved]
  - Hyponatraemia [Recovering/Resolving]
  - Nausea [Recovered/Resolved]
  - Decreased appetite [Recovering/Resolving]
  - Diarrhoea [Recovering/Resolving]

NARRATIVE: CASE EVENT DATE: 20150723
